FAERS Safety Report 7377988-2 (Version None)
Quarter: 2011Q1

REPORT INFORMATION
  Report Type: 
  Country: None (occurrence: None)
  Receive Date: 20110328
  Receipt Date: 20110318
  Transmission Date: 20110831
  Serious: Yes (Hospitalization)
  Sender: FDA-Public Use
  Company Number: ZA-SANOFI-AVENTIS-2011SA016353

PATIENT
  Age: 46 Year
  Sex: Female

DRUGS (2)
  1. APIDRA [Suspect]
     Route: 058
     Dates: start: 20100705
  2. LANTUS [Suspect]
     Route: 058
     Dates: start: 20100705

REACTIONS (3)
  - HEADACHE [None]
  - HYPERGLYCAEMIA [None]
  - COUGH [None]
